FAERS Safety Report 8547754-0 (Version None)
Quarter: 2012Q3

REPORT INFORMATION
  Report Type: 
  Country: None (occurrence: None)
  Receive Date: 20120727
  Receipt Date: 20111212
  Transmission Date: 20120928
  Serious: Yes (Life-Threatening, Other)
  Sender: FDA-Public Use
  Company Number: US-ASTRAZENECA-2011SE75024

PATIENT
  Age: 52 Year
  Sex: Female
  Weight: 108.9 kg

DRUGS (4)
  1. SEROQUEL XR [Suspect]
     Indication: BIPOLAR DISORDER
     Route: 048
     Dates: end: 20111125
  2. LAMICTAL [Concomitant]
  3. SEROQUEL XR [Suspect]
     Indication: DEPRESSION
     Route: 048
     Dates: end: 20111125
  4. AMITRIPTYLINE HYDROCHLORIDE [Concomitant]

REACTIONS (4)
  - DEPRESSION [None]
  - RESTLESS LEGS SYNDROME [None]
  - SUICIDE ATTEMPT [None]
  - DRUG INEFFECTIVE [None]
